FAERS Safety Report 9519370 (Version 1)
Quarter: 2013Q3

REPORT INFORMATION
  Report Type: Spontaneous
  Country: FR (occurrence: FR)
  Receive Date: 20130912
  Receipt Date: 20130912
  Transmission Date: 20140515
  Serious: Yes (Hospitalization)
  Sender: FDA-Public Use
  Company Number: FR-B.I. PHARMACEUTICALS,INC./RIDGEFIELD-2013-FF-02273FF

PATIENT
  Age: 83 Year
  Sex: Male

DRUGS (2)
  1. PRADAXA [Suspect]
     Indication: CARDIAC DISORDER
     Dosage: 220 MG
     Route: 048
     Dates: start: 201304
  2. CORDARONE [Concomitant]

REACTIONS (1)
  - Localised infection [Unknown]
